FAERS Safety Report 17213569 (Version 2)
Quarter: 2020Q1

REPORT INFORMATION
  Report Type: Spontaneous
  Country: JP (occurrence: JP)
  Receive Date: 20191230
  Receipt Date: 20200121
  Transmission Date: 20200409
  Serious: Yes (Other)
  Sender: FDA-Public Use
  Company Number: JP-PFIZER INC-2019526760

PATIENT
  Age: 77 Year
  Sex: Male

DRUGS (3)
  1. LEVOFLOXACIN DSEP [Suspect]
     Active Substance: LEVOFLOXACIN
     Indication: ARTHRITIS BACTERIAL
     Dosage: 500 MG, DAILY
     Route: 048
     Dates: start: 20191203
  2. GOOFICE [Suspect]
     Active Substance: ELOBIXIBAT
     Dosage: 5 MG, UNK
  3. TOVIAZ [Suspect]
     Active Substance: FESOTERODINE FUMARATE
     Indication: NOCTURIA
     Dosage: 4 MG, DAILY
     Route: 048
     Dates: start: 20191202, end: 20191202

REACTIONS (1)
  - Urinary retention [Recovered/Resolved]

NARRATIVE: CASE EVENT DATE: 20191203
